FAERS Safety Report 15007045 (Version 1)
Quarter: 2018Q2

REPORT INFORMATION
  Report Type: Spontaneous
  Country: US (occurrence: US)
  Receive Date: 20180526
  Receipt Date: 20180526
  Transmission Date: 20180711
  Serious: No
  Sender: FDA-Public Use
  Company Number: None

PATIENT
  Age: 14 Year
  Sex: Male
  Weight: 49.5 kg

DRUGS (4)
  1. KRILL OIL [Concomitant]
     Active Substance: DIETARY SUPPLEMENT
  2. MULTIVITAMIN [Concomitant]
     Active Substance: VITAMINS
  3. METHYLPHENIDATE ER 54MG [Suspect]
     Active Substance: METHYLPHENIDATE
     Indication: ATTENTION DEFICIT/HYPERACTIVITY DISORDER
     Dosage: ?          QUANTITY:1 DF DOSAGE FORM;?
     Route: 048
  4. VITAMIN D3 [Concomitant]
     Active Substance: CHOLECALCIFEROL

REACTIONS (7)
  - Product substitution issue [None]
  - Product quality issue [None]
  - Aggression [None]
  - Mood swings [None]
  - Confusional state [None]
  - Memory impairment [None]
  - Appetite disorder [None]
